FAERS Safety Report 8142005-3 (Version None)
Quarter: 2012Q1

REPORT INFORMATION
  Report Type: 
  Country: None (occurrence: None)
  Receive Date: 20120216
  Receipt Date: 20120208
  Transmission Date: 20120608
  Serious: Yes (Other)
  Sender: FDA-Public Use
  Company Number: JP-B.I. PHARMACEUTICALS,INC./RIDGEFIELD-2012-BP-01742YA

PATIENT
  Sex: Male

DRUGS (6)
  1. URIEF [Concomitant]
     Dates: start: 20110721, end: 20111221
  2. TAMSULOSIN HCL [Suspect]
     Dosage: 0.2 MG
     Route: 048
     Dates: start: 20110922, end: 20111026
  3. MIRABEGRON [Suspect]
     Indication: POLLAKIURIA
     Dosage: 50 MG
     Route: 048
     Dates: start: 20111201, end: 20111222
  4. TAMSULOSIN HCL [Suspect]
     Indication: BENIGN PROSTATIC HYPERPLASIA
     Dosage: 0.2 MG
     Route: 048
     Dates: start: 20090108, end: 20100826
  5. VESICARE [Suspect]
     Indication: HYPERTONIC BLADDER
     Route: 048
     Dates: start: 20110101
  6. TAMSULOSIN HCL [Suspect]
     Dosage: 0.2 MG
     Route: 048
     Dates: start: 20110718, end: 20110720

REACTIONS (2)
  - DRUG INEFFECTIVE [None]
  - URINARY RETENTION [None]
